FAERS Safety Report 7596583-3 (Version None)
Quarter: 2011Q3

REPORT INFORMATION
  Report Type: 
  Country: None (occurrence: None)
  Receive Date: 20110708
  Receipt Date: 20110624
  Transmission Date: 20111222
  Serious: Yes (Other)
  Sender: FDA-Public Use
  Company Number: US-RANBAXY-2011US-45610

PATIENT

DRUGS (2)
  1. SIMVASTATIN [Suspect]
     Dosage: 80 MG, ONCE DAILY
     Route: 065
     Dates: start: 20090101
  2. SIMVASTATIN [Suspect]
     Indication: BLOOD CHOLESTEROL
     Dosage: 20 MG, ONCE DAILY
     Route: 065
     Dates: start: 20060101, end: 20090101

REACTIONS (3)
  - JOINT INJURY [None]
  - THERAPEUTIC RESPONSE DECREASED [None]
  - ROAD TRAFFIC ACCIDENT [None]
